FAERS Safety Report 15375209 (Version 4)
Quarter: 2018Q4

REPORT INFORMATION
  Report Type: Spontaneous
  Country: US (occurrence: US)
  Receive Date: 20180912
  Receipt Date: 20181009
  Transmission Date: 20190204
  Serious: Yes (Hospitalization, Other)
  Sender: FDA-Public Use
  Company Number: US-GLAXOSMITHKLINE-US2018162336

PATIENT
  Sex: Female

DRUGS (2)
  1. ADVAIR DISKUS [Suspect]
     Active Substance: FLUTICASONE PROPIONATE\SALMETEROL XINAFOATE
     Indication: ASTHMA
     Dosage: UNK
     Route: 055
     Dates: start: 2000
  2. CALCIUM SUPPLEMENTS [Concomitant]
     Active Substance: CALCIUM

REACTIONS (17)
  - Dyspnoea [Unknown]
  - Sinusitis [Unknown]
  - Product complaint [Unknown]
  - Bronchitis [Unknown]
  - Drug ineffective [Unknown]
  - Dyspnoea exertional [Unknown]
  - Osteopenia [Unknown]
  - White blood cell count increased [Unknown]
  - Diabetes mellitus [Unknown]
  - Cough [Unknown]
  - Product use issue [Unknown]
  - Cataract [Unknown]
  - Eosinophil count increased [Unknown]
  - Cardiac failure congestive [Unknown]
  - Fatigue [Unknown]
  - Asthma [Unknown]
  - Asthenia [Unknown]

NARRATIVE: CASE EVENT DATE: 2001
